FAERS Safety Report 6115435-9 (Version None)
Quarter: 2009Q1

REPORT INFORMATION
  Report Type: 
  Country: None (occurrence: None)
  Receive Date: 20090313
  Receipt Date: 20090303
  Transmission Date: 20090719
  Serious: Yes (Death, Life-Threatening)
  Sender: FDA-Public Use
  Company Number: US-ABBOTT-09P-163-0560094-00

PATIENT
  Sex: Male

DRUGS (2)
  1. VICODIN [Suspect]
     Indication: PAIN
  2. METHADONE HCL [Suspect]
     Indication: PAIN

REACTIONS (4)
  - DEATH [None]
  - DRUG INEFFECTIVE [None]
  - FEELING ABNORMAL [None]
  - OVERDOSE [None]
